FAERS Safety Report 21457636 (Version 15)
Quarter: 2023Q4

REPORT INFORMATION
  Report Type: Spontaneous
  Country: LU (occurrence: LU)
  Receive Date: 20221014
  Receipt Date: 20231210
  Transmission Date: 20240109
  Serious: Yes (Disabling, Other)
  Sender: FDA-Public Use
  Company Number: LU-PHARMAESSENTIA-LU-2022-PEC-000818

PATIENT
  Sex: Female

DRUGS (26)
  1. BESREMI [Suspect]
     Active Substance: ROPEGINTERFERON ALFA-2B-NJFT
     Indication: Essential thrombocythaemia
     Dosage: 50 MICROGRAM, Q2W
     Route: 058
     Dates: start: 20220315, end: 20220426
  2. BESREMI [Suspect]
     Active Substance: ROPEGINTERFERON ALFA-2B-NJFT
     Dosage: 60 MICROGRAM, Q2W
     Route: 058
     Dates: start: 20220426, end: 20220513
  3. BESREMI [Suspect]
     Active Substance: ROPEGINTERFERON ALFA-2B-NJFT
     Dosage: 70 MICROGRAM, Q2W
     Route: 058
     Dates: start: 20220513, end: 20220621
  4. BESREMI [Suspect]
     Active Substance: ROPEGINTERFERON ALFA-2B-NJFT
     Dosage: 80 MICROGRAM, Q2W
     Route: 058
     Dates: start: 20220621, end: 202207
  5. BESREMI [Suspect]
     Active Substance: ROPEGINTERFERON ALFA-2B-NJFT
     Dosage: 70 MICROGRAM, Q2W
     Route: 058
     Dates: start: 20220719, end: 2022
  6. BESREMI [Suspect]
     Active Substance: ROPEGINTERFERON ALFA-2B-NJFT
     Dosage: 65 MICROGRAM
     Route: 058
     Dates: start: 2022, end: 202210
  7. BESREMI [Suspect]
     Active Substance: ROPEGINTERFERON ALFA-2B-NJFT
     Dosage: 70 MICROGRAM, Q2W
     Route: 058
     Dates: start: 202210, end: 202211
  8. BESREMI [Suspect]
     Active Substance: ROPEGINTERFERON ALFA-2B-NJFT
     Dosage: 65 MICROGRAM, Q2W
     Route: 058
     Dates: start: 202211, end: 202301
  9. BESREMI [Suspect]
     Active Substance: ROPEGINTERFERON ALFA-2B-NJFT
     Dosage: BESREMI 2 X 65 MCG AND 1 X 60 MCG
     Route: 058
     Dates: start: 20221220
  10. BESREMI [Suspect]
     Active Substance: ROPEGINTERFERON ALFA-2B-NJFT
     Dosage: 60 MICROGRAM, Q2W
     Route: 058
     Dates: start: 202301
  11. ANAGRELIDE HYDROCHLORIDE [Concomitant]
     Active Substance: ANAGRELIDE HYDROCHLORIDE
     Indication: Essential thrombocythaemia
     Dosage: 0.5 MILLIGRAM, Q8H (EACH 8 HR)
     Route: 065
     Dates: start: 202109
  12. ANAGRELIDE HYDROCHLORIDE [Concomitant]
     Active Substance: ANAGRELIDE HYDROCHLORIDE
     Dosage: 0.5 MILLIGRAM, TID
     Route: 065
     Dates: start: 202110, end: 20220315
  13. ANAGRELIDE HYDROCHLORIDE [Concomitant]
     Active Substance: ANAGRELIDE HYDROCHLORIDE
     Dosage: 0.5 MILLIGRAM EVERY 8 HOUR(S) ADMINISTERED 2-3X DAILY, ALTERNATING
     Route: 065
     Dates: start: 20220315, end: 20220414
  14. ANAGRELIDE HYDROCHLORIDE [Concomitant]
     Active Substance: ANAGRELIDE HYDROCHLORIDE
     Dosage: 0.5 MILLIGRAM, BID
     Route: 065
     Dates: start: 20220414, end: 20220513
  15. ANAGRELIDE HYDROCHLORIDE [Concomitant]
     Active Substance: ANAGRELIDE HYDROCHLORIDE
     Dosage: 0.5 MILLIGRAM, QD
     Route: 065
     Dates: start: 20220513
  16. ANAGRELIDE HYDROCHLORIDE [Concomitant]
     Active Substance: ANAGRELIDE HYDROCHLORIDE
     Dosage: 0.5 MILLIGRAM, Q2W
     Route: 065
     Dates: start: 202211, end: 2022
  17. ANAGRELIDE HYDROCHLORIDE [Concomitant]
     Active Substance: ANAGRELIDE HYDROCHLORIDE
     Dosage: 0.5 MILLIGRAM, BID
     Route: 065
  18. ANAGRELIDE HYDROCHLORIDE [Concomitant]
     Active Substance: ANAGRELIDE HYDROCHLORIDE
     Dosage: 0.5 MILLIGRAM, QD
     Route: 065
  19. ANAGRELIDE HYDROCHLORIDE [Concomitant]
     Active Substance: ANAGRELIDE HYDROCHLORIDE
     Dosage: 0.5 MILLIGRAM EVERY 2 DAYS
     Route: 065
  20. ASPIRIN [Concomitant]
     Active Substance: ASPIRIN
     Indication: Essential thrombocythaemia
     Dosage: 80 MILLIGRAM
     Route: 065
  21. ASPIRIN [Concomitant]
     Active Substance: ASPIRIN
     Dosage: 80 MILLIGRAM, QD
     Route: 065
     Dates: start: 202211, end: 2022
  22. ELIQUIS [Concomitant]
     Active Substance: APIXABAN
     Indication: Essential thrombocythaemia
     Dosage: 2.5 MILLIGRAM, BID
     Route: 065
  23. ELIQUIS [Concomitant]
     Active Substance: APIXABAN
     Dosage: 5 MILLIGRAM, BID
     Route: 065
  24. ELIQUIS [Concomitant]
     Active Substance: APIXABAN
     Dosage: 2.25 MG, BID
     Route: 065
     Dates: start: 202211
  25. ELIQUIS [Concomitant]
     Active Substance: APIXABAN
     Dosage: 2.5 MILLIGRAM, BID
     Route: 065
  26. DOXYCYCLINE RATIOPHARM [DOXYCYCLINE] [Concomitant]
     Indication: Animal bite
     Dosage: UNK
     Route: 065
     Dates: start: 20230808

REACTIONS (17)
  - Hepatic fibrosis [Unknown]
  - Cerebral venous sinus thrombosis [Not Recovered/Not Resolved]
  - Colitis ulcerative [Recovered/Resolved]
  - Intestinal haemorrhage [Recovered/Resolved]
  - Hepatic cyst [Unknown]
  - Vasodilatation [Unknown]
  - Intentional device misuse [Unknown]
  - Off label use [Unknown]
  - Contraindicated product administered [Unknown]
  - Burning sensation [Recovered/Resolved]
  - Nasal dryness [Not Recovered/Not Resolved]
  - Borrelia test positive [Unknown]
  - Paraesthesia [Recovering/Resolving]
  - Hepatic enzyme increased [Unknown]
  - Pain in extremity [Recovered/Resolved]
  - Pruritus [Recovering/Resolving]
  - Dry eye [Not Recovered/Not Resolved]

NARRATIVE: CASE EVENT DATE: 20220315
